FAERS Safety Report 23027268 (Version 1)
Quarter: 2023Q4

REPORT INFORMATION
  Report Type: Spontaneous
  Country: US (occurrence: None)
  Receive Date: 20231003
  Receipt Date: 20231003
  Transmission Date: 20240110
  Serious: No
  Sender: FDA-Public Use
  Company Number: None

PATIENT
  Age: 43 Year
  Sex: Female

DRUGS (1)
  1. PINK EYE RELIEF [Suspect]
     Active Substance: ACONITUM NAPELLUS\APIS MELLIFERA\EUPHRASIA STRICTA\SILVER NITRATE\SODIUM ARSENATE, DIBASIC, HEPTAHYD
     Indication: Conjunctivitis
     Dates: start: 20211001, end: 20230927

REACTIONS (4)
  - Instillation site erythema [None]
  - Lacrimation increased [None]
  - Instillation site irritation [None]
  - Therapy cessation [None]
